FAERS Safety Report 6144324-9 (Version None)
Quarter: 2009Q2

REPORT INFORMATION
  Report Type: 
  Country: None (occurrence: None)
  Receive Date: 20090406
  Receipt Date: 20090323
  Transmission Date: 20091009
  Serious: Yes (Life-Threatening, Other)
  Sender: FDA-Public Use
  Company Number: JP-BAYER-200910863BYL

PATIENT
  Age: 52 Year
  Sex: Male
  Weight: 54 kg

DRUGS (8)
  1. FLUDARA [Suspect]
     Indication: DIFFUSE LARGE B-CELL LYMPHOMA
     Dosage: TOTAL DAILY DOSE: 50 MG  UNIT DOSE: 50 MG
     Route: 042
     Dates: start: 20080604, end: 20080609
  2. MELPHALAN [Concomitant]
     Indication: DIFFUSE LARGE B-CELL LYMPHOMA
     Dosage: AS USED: 120 MG
     Route: 042
     Dates: start: 20080606, end: 20080607
  3. CYTARABINE [Concomitant]
     Indication: DIFFUSE LARGE B-CELL LYMPHOMA
     Dosage: AS USED: 6.6 G
     Route: 042
     Dates: start: 20080604, end: 20080605
  4. THIOTEPA [Concomitant]
     Indication: DIFFUSE LARGE B-CELL LYMPHOMA
     Dosage: AS USED: 300 MG
     Route: 042
     Dates: start: 20080609, end: 20080610
  5. ATGAM [Concomitant]
     Indication: DIFFUSE LARGE B-CELL LYMPHOMA
     Dosage: AS USED: 120 MG
     Route: 042
     Dates: start: 20080608, end: 20080611
  6. PROGRAF [Concomitant]
     Route: 041
     Dates: start: 20080608, end: 20080728
  7. PROGRAF [Concomitant]
     Route: 048
     Dates: start: 20080803, end: 20080921
  8. MYCOPHENOLATE MOFETIL [Concomitant]
     Route: 065
     Dates: start: 20080615, end: 20080706

REACTIONS (1)
  - GASTRIC CANCER [None]
